FAERS Safety Report 7012723-9 (Version None)
Quarter: 2010Q3

REPORT INFORMATION
  Report Type: 
  Country: None (occurrence: None)
  Receive Date: 20100914
  Receipt Date: 20100625
  Transmission Date: 20110219
  Serious: Yes (Other)
  Sender: FDA-Public Use
  Company Number: 2010059410

PATIENT
  Age: 70 Year
  Sex: Male
  Weight: 81.6 kg

DRUGS (3)
  1. GLIPIZIDE [Suspect]
     Indication: BLOOD GLUCOSE INCREASED
     Dosage: 2.5 MG, 2X/DAY, ORAL
     Route: 048
     Dates: start: 20080101
  2. PRAVASTATIN (PRAVASTANTIN) [Concomitant]
  3. ALBUTEROL [Concomitant]

REACTIONS (1)
  - BLOOD GLUCOSE ABNORMAL [None]
